FAERS Safety Report 9896651 (Version 1)
Quarter: 2014Q1

REPORT INFORMATION
  Report Type: Spontaneous
  Country: US (occurrence: US)
  Receive Date: 20140213
  Receipt Date: 20140213
  Transmission Date: 20141002
  Serious: No
  Sender: FDA-Public Use
  Company Number: US-BRISTOL-MYERS SQUIBB COMPANY-18876466

PATIENT
  Age: 24 Year
  Sex: Female
  Weight: 58.96 kg

DRUGS (6)
  1. ABATACEPT SUBQ INJECTION 125MG/ML [Suspect]
     Route: 058
  2. ESTRADIOL + NORGESTIMATE [Concomitant]
     Dosage: TABS
  3. METHOTREXATE TABS [Concomitant]
     Dosage: TABS
  4. NAPROSYN [Concomitant]
     Dosage: TABS
  5. PREDNISONE [Concomitant]
     Dosage: TABS
  6. FOLIC ACID [Concomitant]
     Dosage: TABS

REACTIONS (2)
  - Skin disorder [Unknown]
  - Nasopharyngitis [Unknown]
